FAERS Safety Report 11541020 (Version 1)
Quarter: 2015Q3

REPORT INFORMATION
  Report Type: Spontaneous
  Country: BR (occurrence: BR)
  Receive Date: 20150923
  Receipt Date: 20150923
  Transmission Date: 20151125
  Serious: Yes (Other)
  Sender: FDA-Public Use
  Company Number: BR-DSJP-DSU-2015-129591

PATIENT

DRUGS (3)
  1. CALTRATE                           /00944201/ [Concomitant]
     Indication: PROPHYLAXIS
     Dosage: 1 DF, UNK
     Dates: start: 201503
  2. OLMETEC [Suspect]
     Active Substance: OLMESARTAN MEDOXOMIL
     Indication: BLOOD PRESSURE INCREASED
     Dosage: 20/12.5 MG
     Route: 048
     Dates: start: 2015
  3. AROMASIN [Concomitant]
     Active Substance: EXEMESTANE
     Indication: BREAST CANCER
     Dosage: 1 DF, UNK
     Dates: start: 201503

REACTIONS (2)
  - Neoplasm malignant [Unknown]
  - Blood pressure increased [Unknown]
